FAERS Safety Report 8965629 (Version 1)
Quarter: 2012Q4

REPORT INFORMATION
  Report Type: Spontaneous
  Country: SZ (occurrence: None)
  Receive Date: 20121206
  Receipt Date: 20121206
  Transmission Date: 20130627
  Serious: Yes (Hospitalization)
  Sender: FDA-Public Use
  Company Number: 2012034084

PATIENT
  Age: 49 Year
  Sex: Female

DRUGS (1)
  1. HIZENTRA [Suspect]
     Indication: IMMUNODEFICIENCY
     Route: 058
     Dates: start: 20120212, end: 20120910

REACTIONS (1)
  - Infusion site infection [None]
